FAERS Safety Report 11515043 (Version 1)
Quarter: 2015Q3

REPORT INFORMATION
  Report Type: Spontaneous
  Country: None (occurrence: US)
  Receive Date: 20150916
  Receipt Date: 20150916
  Transmission Date: 20151125
  Serious: No
  Sender: FDA-Public Use
  Company Number: US-MERZ NORTH AMERICA, INC.-15MRZ-00490

PATIENT
  Sex: Male
  Weight: 115.77 kg

DRUGS (1)
  1. NAFTIN [Suspect]
     Active Substance: NAFTIFINE HYDROCHLORIDE
     Indication: TINEA PEDIS
     Route: 061
     Dates: start: 20150815

REACTIONS (1)
  - Blister [None]
